FAERS Safety Report 10638732 (Version 1)
Quarter: 2014Q4

REPORT INFORMATION
  Report Type: Spontaneous
  Country: US (occurrence: US)
  Receive Date: 20141208
  Receipt Date: 20141208
  Transmission Date: 20150529
  Serious: No
  Sender: FDA-Public Use
  Company Number: US-ENDO PHARMACEUTICALS INC.-FRVA20140014

PATIENT
  Sex: Female

DRUGS (1)
  1. FROVA [Suspect]
     Active Substance: FROVATRIPTAN SUCCINATE
     Indication: MIGRAINE
     Dosage: 2.5MG
     Route: 048

REACTIONS (1)
  - Drug effect decreased [Not Recovered/Not Resolved]
